FAERS Safety Report 6168391-1 (Version None)
Quarter: 2009Q2

REPORT INFORMATION
  Report Type: 
  Country: None (occurrence: None)
  Receive Date: 20090427
  Receipt Date: 20090417
  Transmission Date: 20091009
  Serious: Yes (Hospitalization)
  Sender: FDA-Public Use
  Company Number: JP-AVENTIS-200911083JP

PATIENT
  Age: 44 Year
  Sex: Female

DRUGS (1)
  1. LASIX [Suspect]
     Route: 048

REACTIONS (3)
  - ANOREXIA [None]
  - DIZZINESS [None]
  - HYPOKALAEMIA [None]
